FAERS Safety Report 6272736-1 (Version None)
Quarter: 2009Q3

REPORT INFORMATION
  Report Type: 
  Country: None (occurrence: None)
  Receive Date: 20090717
  Receipt Date: 20090709
  Transmission Date: 20100115
  Serious: Yes (Other)
  Sender: FDA-Public Use
  Company Number: PHHY2009MX28415

PATIENT
  Age: 60 Year
  Sex: Female

DRUGS (2)
  1. EXELON [Suspect]
     Indication: DEMENTIA ALZHEIMER'S TYPE
     Dosage: 5CM2 1 PATCH DAILY
     Route: 048
     Dates: start: 20090501, end: 20090601
  2. ADEPSIQUE [Concomitant]

REACTIONS (7)
  - DIZZINESS [None]
  - EYE DISORDER [None]
  - FEELING OF DESPAIR [None]
  - HEADACHE [None]
  - TACHYCARDIA [None]
  - VOMITING [None]
  - WEIGHT DECREASED [None]
